FAERS Safety Report 6867001 (Version 9)
Quarter: 2015Q4

REPORT INFORMATION
  Report Type: Spontaneous
  Country: US (occurrence: US)
  Receive Date: 20081226
  Receipt Date: 20151012
  Transmission Date: 20160305
  Serious: Yes (Other)
  Sender: FDA-Public Use
  Company Number: US-BAYER-200841177NA

PATIENT
  Age: 40 Year
  Sex: Female
  Weight: 58.18 kg

DRUGS (2)
  1. AVELOX [Suspect]
     Active Substance: MOXIFLOXACIN HYDROCHLORIDE
     Indication: SINUSITIS
     Dates: start: 20081217, end: 20081218
  2. CIPRO [Suspect]
     Active Substance: CIPROFLOXACIN HYDROCHLORIDE
     Indication: SINUSITIS
     Dates: start: 20081218

REACTIONS (16)
  - Feeling hot [Recovering/Resolving]
  - Burning sensation [Recovering/Resolving]
  - Delusion [Recovering/Resolving]
  - Disorientation [Recovering/Resolving]
  - Balance disorder [Not Recovered/Not Resolved]
  - Dizziness [Recovering/Resolving]
  - Headache [Not Recovered/Not Resolved]
  - Emotional distress [None]
  - Dizziness [Not Recovered/Not Resolved]
  - Mobility decreased [Recovering/Resolving]
  - Retching [Recovering/Resolving]
  - Incoherent [Recovering/Resolving]
  - Motor dysfunction [Recovering/Resolving]
  - Injury [None]
  - Pain [None]
  - Neuropathy peripheral [None]

NARRATIVE: CASE EVENT DATE: 20081218
